FAERS Safety Report 24397381 (Version 1)
Quarter: 2024Q4

REPORT INFORMATION
  Report Type: Spontaneous
  Country: US (occurrence: None)
  Receive Date: 20241004
  Receipt Date: 20241004
  Transmission Date: 20250115
  Serious: Yes (Hospitalization)
  Sender: Public
  Company Number: None

PATIENT
  Age: 44 Year
  Sex: Female

DRUGS (2)
  1. ICATIBANT [Suspect]
     Active Substance: ICATIBANT ACETATE
     Indication: Complement deficiency disease
     Dosage: OTHER FREQUENCY : PRN UP TO 3 TIMES DAILY ;?
  2. HAEGARDA [Concomitant]

REACTIONS (3)
  - Oropharyngeal discomfort [None]
  - Product use issue [None]
  - Insurance issue [None]
